FAERS Safety Report 9607385 (Version 1)
Quarter: 2013Q4

REPORT INFORMATION
  Report Type: Spontaneous
  Country: US (occurrence: None)
  Receive Date: 20131007
  Receipt Date: 20131007
  Transmission Date: 20140711
  Serious: Yes (Other)
  Sender: FDA-Public Use
  Company Number: None

PATIENT
  Age: 57 Year
  Sex: Female
  Weight: 82.1 kg

DRUGS (2)
  1. CEPHALEXIN 500 MG UNKNOWN [Suspect]
     Indication: EAR INFECTION
     Route: 048
     Dates: start: 20130925, end: 20131004
  2. ABILIFY 5 MG BRISTOL-MYERS SQUIBB [Suspect]
     Dosage: 1/2 PILL AS NEEDED
     Dates: start: 20131002, end: 20131002

REACTIONS (1)
  - Pruritus [None]
